FAERS Safety Report 9093193 (Version 2)
Quarter: 2013Q1

REPORT INFORMATION
  Report Type: Spontaneous
  Country: SE (occurrence: SE)
  Receive Date: 20130201
  Receipt Date: 20130311
  Transmission Date: 20140127
  Serious: Yes (Hospitalization, Other)
  Sender: FDA-Public Use
  Company Number: SE-PFIZER INC-2013041502

PATIENT
  Age: 45 Year
  Sex: Female
  Weight: 65 kg

DRUGS (4)
  1. CHAMPIX [Suspect]
     Indication: SMOKING CESSATION THERAPY
     Dosage: 0.5 MG, UNK
     Route: 048
     Dates: start: 20130120, end: 20130126
  2. CHAMPIX [Suspect]
     Dosage: 1 MG, UNK
     Route: 048
     Dates: start: 20130127
  3. PROVERA [Concomitant]
     Dosage: 5 MG, 2X/DAY
     Dates: start: 2010
  4. BEHEPAN [Concomitant]
     Dosage: 1 MG, 1X/DAY
     Dates: start: 2010

REACTIONS (3)
  - Abdominal pain [Recovered/Resolved]
  - Menstrual disorder [Recovered/Resolved]
  - Irritable bowel syndrome [Unknown]
